FAERS Safety Report 6314244-5 (Version None)
Quarter: 2009Q3

REPORT INFORMATION
  Report Type: 
  Country: None (occurrence: None)
  Receive Date: 20090817
  Receipt Date: 20090804
  Transmission Date: 20100115
  Serious: Yes (Death, Hospitalization)
  Sender: FDA-Public Use
  Company Number: 2008AL008239

PATIENT
  Age: 63 Year
  Sex: Male

DRUGS (5)
  1. DIGOXIN [Suspect]
     Indication: HEART RATE IRREGULAR
     Dosage: 0.125MG, QOD, PO
     Route: 048
     Dates: start: 20080116
  2. CALCIUM ACETATE [Concomitant]
  3. MIDODRINE [Concomitant]
  4. ASPIRIN [Concomitant]
  5. PHOSLO [Concomitant]

REACTIONS (10)
  - ABASIA [None]
  - ATRIAL FIBRILLATION [None]
  - DIALYSIS [None]
  - DIZZINESS [None]
  - FLUID RETENTION [None]
  - HYPERTENSION [None]
  - HYPOTENSION [None]
  - NAUSEA [None]
  - RENAL DISORDER [None]
  - VOMITING [None]
